FAERS Safety Report 18410449 (Version 2)
Quarter: 2021Q3

REPORT INFORMATION
  Report Type: Spontaneous
  Country: US (occurrence: US)
  Receive Date: 20201021
  Receipt Date: 20210721
  Transmission Date: 20211014
  Serious: Yes (Other)
  Sender: FDA-Public Use
  Company Number: US-PFIZER INC-2020406013

PATIENT
  Age: 56 Year

DRUGS (1)
  1. DILANTIN [Suspect]
     Active Substance: PHENYTOIN
     Dosage: UNK, DAILY (TAKE 3?4 EVERY NIGHT)

REACTIONS (2)
  - Expired product administered [Unknown]
  - Seizure [Unknown]
